FAERS Safety Report 9122151 (Version 1)
Quarter: 2013Q1

REPORT INFORMATION
  Report Type: Spontaneous
  Country: US (occurrence: US)
  Receive Date: 20130227
  Receipt Date: 20130227
  Transmission Date: 20140127
  Serious: Yes (Hospitalization)
  Sender: FDA-Public Use
  Company Number: PHEH2012US018017

PATIENT
  Sex: Female

DRUGS (2)
  1. TASIGNA [Suspect]
     Dosage: 200 MG, UNK
     Route: 048
  2. MORPHINE [Concomitant]

REACTIONS (3)
  - Compression fracture [Unknown]
  - Back injury [Unknown]
  - Insomnia [Unknown]
